FAERS Safety Report 11492206 (Version 3)
Quarter: 2015Q4

REPORT INFORMATION
  Report Type: Spontaneous
  Country: US (occurrence: US)
  Receive Date: 20150910
  Receipt Date: 20151201
  Transmission Date: 20160304
  Serious: Yes (Hospitalization, Other)
  Sender: FDA-Public Use
  Company Number: US-PFIZER INC-2015294329

PATIENT
  Age: 87 Year
  Sex: Female
  Weight: 76.64 kg

DRUGS (95)
  1. LEVOTHYROXINE. [Concomitant]
     Active Substance: LEVOTHYROXINE
     Dosage: 125 ?G, BID
     Route: 048
  2. METOPROLOL TARTRATE. [Concomitant]
     Active Substance: METOPROLOL TARTRATE
     Dosage: 100 MG, QD
     Route: 048
  3. LOTRISONE [Concomitant]
     Active Substance: BETAMETHASONE DIPROPIONATE\CLOTRIMAZOLE
     Dosage: 1 APPLICATION, BID
     Route: 061
  4. STOOL SOFTENER [Concomitant]
     Active Substance: DOCUSATE CALCIUM
     Dosage: UNK, AS NEEDED
  5. WARFARIN [Concomitant]
     Active Substance: WARFARIN
     Dosage: 3 MG, QD
     Route: 048
  6. WARFARIN [Concomitant]
     Active Substance: WARFARIN
     Dosage: 4 MG, QD
     Route: 048
  7. FUROSEMIDE. [Concomitant]
     Active Substance: FUROSEMIDE
     Dosage: 40 MG, QD
     Route: 048
  8. LANTUS [Concomitant]
     Active Substance: INSULIN GLARGINE
     Dosage: 30 IU (SUB-Q), QAM
     Route: 058
  9. AMLODIPINE [Concomitant]
     Active Substance: AMLODIPINE BESYLATE
     Dosage: 5 MG, QD
     Route: 048
  10. ATORVASTATIN [Concomitant]
     Active Substance: ATORVASTATIN
     Dosage: 80 MG, QD
     Route: 048
  11. BUDESONIDE. [Concomitant]
     Active Substance: BUDESONIDE
     Dosage: 1 PUFF, BID
     Route: 055
  12. BUDESONIDE. [Concomitant]
     Active Substance: BUDESONIDE
     Dosage: MILLILITERS(S)
     Route: 055
  13. CIPRO [Concomitant]
     Active Substance: CIPROFLOXACIN HYDROCHLORIDE
     Dosage: 250 MG, BID
     Route: 048
  14. COD LIVER OIL [Concomitant]
     Active Substance: COD LIVER OIL
     Dosage: 1 DF, QD
     Route: 048
  15. HUMALOG [Concomitant]
     Active Substance: INSULIN LISPRO
     Dosage: 5 IU (CARTRIDGE), QPM
     Route: 058
  16. HUMALOG [Concomitant]
     Active Substance: INSULIN LISPRO
     Dosage: 2 IU (SUB-Q), AC (BEFORE A MEAL)
     Route: 058
  17. VITAMIN B12 + FOLIC ACID [Concomitant]
     Dosage: 400 ?G, QD
     Route: 060
  18. LEVOTHYROXINE. [Concomitant]
     Active Substance: LEVOTHYROXINE
     Dosage: 125 ?G, QD
     Route: 048
  19. ISOSORBIDE MONONITRATE EXTENDED RELEASE [Concomitant]
     Active Substance: ISOSORBIDE MONONITRATE
     Dosage: 30 MG, QD
     Route: 048
  20. METOPROLOL TARTRATE. [Concomitant]
     Active Substance: METOPROLOL TARTRATE
     Dosage: 25 MG, BID
     Route: 048
  21. STOOL SOFTENER [Concomitant]
     Active Substance: DOCUSATE CALCIUM
     Dosage: 100 MG, Q3DAYS
     Route: 048
  22. CLOPIDOGREL [Concomitant]
     Active Substance: CLOPIDOGREL BISULFATE
     Dosage: 75 MG, QD
     Route: 048
  23. LANTUS [Concomitant]
     Active Substance: INSULIN GLARGINE
     Dosage: 20 IU (SUB-Q), QAM
     Route: 058
  24. AMOXYCILLIN [Concomitant]
     Active Substance: AMOXICILLIN
     Indication: DENTAL CLEANING
     Dosage: 500 MG CAPSULE, 4 CAPSULES PRN
     Route: 048
  25. ASPIRIN. [Concomitant]
     Active Substance: ASPIRIN
     Dosage: 81 MG, QD
     Route: 048
  26. HYDRALAZINE [Concomitant]
     Active Substance: HYDRALAZINE HYDROCHLORIDE
     Dosage: 50 MG, QID
     Route: 048
  27. HYDRALAZINE [Concomitant]
     Active Substance: HYDRALAZINE HYDROCHLORIDE
     Dosage: 50 MG, QID
     Route: 048
     Dates: start: 20150818
  28. KLOR-CON M10 [Concomitant]
     Active Substance: POTASSIUM CHLORIDE
     Dosage: 10 MEQ, QD
     Route: 048
  29. NOVOLIN N [Concomitant]
     Active Substance: INSULIN HUMAN
     Dosage: 5 IU, QD
     Route: 058
  30. LEVOTHYROXINE. [Concomitant]
     Active Substance: LEVOTHYROXINE
     Dosage: 150 ?G, QD
     Route: 048
  31. LEVOTHYROXINE. [Concomitant]
     Active Substance: LEVOTHYROXINE
     Dosage: 175 ?G, QD
     Route: 048
  32. LEVOTHYROXINE. [Concomitant]
     Active Substance: LEVOTHYROXINE
     Dosage: 200 ?G, 2X/WEEK
     Route: 048
  33. POTASSIUM CHLORIDE ER [Concomitant]
     Active Substance: POTASSIUM CHLORIDE
     Dosage: 10 MEQ CAPSULE, 2 CAPSULES QD
     Route: 048
  34. POTASSIUM CHLORIDE ER [Concomitant]
     Active Substance: POTASSIUM CHLORIDE
     Dosage: 10 MEQ CAPSULE, 2 CAPSULES QD
     Route: 048
     Dates: start: 20150331
  35. FUROSEMIDE. [Concomitant]
     Active Substance: FUROSEMIDE
     Dosage: 20 MG, QD
     Route: 048
  36. FLONASE ALLERGY RELIEF [Concomitant]
     Active Substance: FLUTICASONE PROPIONATE
     Dosage: 2 SPRAY, QD
     Route: 045
  37. LANTUS [Concomitant]
     Active Substance: INSULIN GLARGINE
     Dosage: UNK (SOLUTION)
     Route: 058
  38. DIGOXIN. [Concomitant]
     Active Substance: DIGOXIN
     Dosage: 125 ?G, QD
     Route: 048
  39. FERROUS FUMARATE [Concomitant]
     Active Substance: FERROUS FUMARATE
     Dosage: 324 MG, QD
     Route: 048
  40. FLEXERIL [Concomitant]
     Active Substance: CYCLOBENZAPRINE HYDROCHLORIDE
     Dosage: 10 MG, PRN
     Route: 048
  41. LYRICA [Suspect]
     Active Substance: PREGABALIN
     Indication: PAIN
     Dosage: 25 MG, 1X/DAY
     Dates: start: 20150727
  42. LYRICA [Suspect]
     Active Substance: PREGABALIN
     Indication: NEUROPATHY PERIPHERAL
     Dosage: 25 MG, QHS
     Route: 048
     Dates: start: 201508
  43. ACETAMINOPHEN. [Concomitant]
     Active Substance: ACETAMINOPHEN
     Dosage: 500 MG, QHS
     Route: 048
  44. CLOTRIMAZOLE. [Concomitant]
     Active Substance: CLOTRIMAZOLE
     Dosage: UNK
     Route: 061
  45. FERROUS SULFATE [Concomitant]
     Active Substance: FERROUS SULFATE\FERROUS SULFATE, DRIED
     Dosage: 325 MG, TID
     Route: 048
  46. FERROUS SULFATE + FOLIC ACID [Concomitant]
     Dosage: UNK
     Route: 048
  47. HYDRALAZINE [Concomitant]
     Active Substance: HYDRALAZINE HYDROCHLORIDE
     Dosage: 25 MG TABLET, 3 TABLETS QID
     Route: 048
  48. LASIX [Concomitant]
     Active Substance: FUROSEMIDE
     Dosage: 40 MG, DAILY
  49. CHLORTHALIDONE. [Concomitant]
     Active Substance: CHLORTHALIDONE
     Dosage: 25 MG, QD
     Route: 048
  50. LYRICA [Suspect]
     Active Substance: PREGABALIN
     Indication: RESTLESSNESS
  51. LEVOTHYROXINE. [Concomitant]
     Active Substance: LEVOTHYROXINE
     Dosage: 125 ?G, QD
     Route: 048
     Dates: start: 20150818
  52. METOPROLOL TARTRATE. [Concomitant]
     Active Substance: METOPROLOL TARTRATE
     Dosage: 25 MG, BID
     Route: 048
  53. ZOFRAN [Concomitant]
     Active Substance: ONDANSETRON HYDROCHLORIDE
     Dosage: 4 MG, PRN
     Route: 048
  54. SYNTHROID [Concomitant]
     Active Substance: LEVOTHYROXINE SODIUM
     Dosage: 137 ?G, BIW (BIWEEKLY)
     Route: 048
  55. ZETIA [Concomitant]
     Active Substance: EZETIMIBE
     Dosage: 10 MG, QHS
     Route: 048
  56. CLOPIDOGREL [Concomitant]
     Active Substance: CLOPIDOGREL BISULFATE
     Dosage: 75 MG, QD
     Route: 048
  57. TRAMADOL. [Concomitant]
     Active Substance: TRAMADOL
     Dosage: 50 MG, PRN
     Route: 048
  58. NOVOLIN 70/30 [Concomitant]
     Active Substance: INSULIN HUMAN
     Dosage: UNK
     Route: 058
  59. NITROSTAT [Concomitant]
     Active Substance: NITROGLYCERIN
     Dosage: 0.4 MG SUBLINGUAL TABLET, 2 TABLETS AS NEEDED
     Route: 060
  60. FUROSEMIDE. [Concomitant]
     Active Substance: FUROSEMIDE
     Dosage: 40 MG, BID
     Route: 048
  61. LANTUS [Concomitant]
     Active Substance: INSULIN GLARGINE
     Dosage: 20 IU (SOLUTION), QAM
     Route: 058
  62. ATORVASTATIN [Concomitant]
     Active Substance: ATORVASTATIN
     Dosage: 40 MG, 1/2 TABLETS QD
     Route: 048
  63. COENZYME Q10 [Concomitant]
     Active Substance: UBIDECARENONE
     Dosage: 100 MG, QD
     Route: 048
  64. GABAPENTIN. [Concomitant]
     Active Substance: GABAPENTIN
     Dosage: 100 MG, QD
     Route: 048
  65. HYDRALAZINE [Concomitant]
     Active Substance: HYDRALAZINE HYDROCHLORIDE
     Dosage: 50 MG, TID
     Route: 048
  66. NOVOLIN N [Concomitant]
     Active Substance: INSULIN HUMAN
     Dosage: UNK, AS NEEDED
  67. VITAMIN B12 [Concomitant]
     Active Substance: CYANOCOBALAMIN
     Dosage: 1000 ?G, QD
     Route: 048
  68. LEVOTHYROXINE. [Concomitant]
     Active Substance: LEVOTHYROXINE
     Dosage: 125 ?G, QD
     Route: 048
  69. LEVOTHYROXINE. [Concomitant]
     Active Substance: LEVOTHYROXINE
     Dosage: 125 ?G, QD
     Route: 048
  70. ISOSORBIDE MONONITRATE EXTENDED RELEASE [Concomitant]
     Active Substance: ISOSORBIDE MONONITRATE
     Dosage: 30 MG, QD
     Route: 048
     Dates: start: 20150818
  71. VITAMIN D3 [Concomitant]
     Active Substance: CHOLECALCIFEROL
     Dosage: 1,000 UNIT TABLET, 2 TABLETS QD
     Route: 048
  72. WARFARIN [Concomitant]
     Active Substance: WARFARIN
     Dosage: 4 MG, 5 DAYS A WEEK
     Route: 048
  73. LANTUS [Concomitant]
     Active Substance: INSULIN GLARGINE
     Dosage: UNK (SOLUTION)
     Route: 058
  74. COENZYME Q10 [Concomitant]
     Active Substance: UBIDECARENONE
     Dosage: 100 MG, QD
     Route: 048
  75. LASIX [Concomitant]
     Active Substance: FUROSEMIDE
     Dosage: 80 MG, QD
     Route: 048
  76. LEVOTHYROXINE. [Concomitant]
     Active Substance: LEVOTHYROXINE
     Dosage: 112 ?G, QD
     Route: 048
  77. METOPROLOL TARTRATE. [Concomitant]
     Active Substance: METOPROLOL TARTRATE
     Dosage: 25 MG, QD
     Route: 048
  78. VITAMIN D2 [Concomitant]
     Active Substance: ERGOCALCIFEROL
     Dosage: 50000 IU, TIW (THREE TIMES A WEEK)
     Route: 048
  79. WARFARIN [Concomitant]
     Active Substance: WARFARIN
     Dosage: 4 MG, 6 DAYS QW
     Route: 048
  80. CIPRO [Concomitant]
     Active Substance: CIPROFLOXACIN HYDROCHLORIDE
     Dosage: 250 MG, BID
     Route: 048
  81. LASIX [Concomitant]
     Active Substance: FUROSEMIDE
     Dosage: 80 MG, QD
     Route: 048
  82. WELCHOL [Concomitant]
     Active Substance: COLESEVELAM HYDROCHLORIDE
     Dosage: 625 MG TABLET, 3 TABLETS QD
     Route: 048
  83. IPRATROPIUM BROMIDE. [Concomitant]
     Active Substance: IPRATROPIUM BROMIDE
     Dosage: UNK
     Route: 055
  84. METHYLPREDNISOLONE. [Concomitant]
     Active Substance: METHYLPREDNISOLONE
     Dosage: 4 MG, AS DIRECTED
     Route: 048
  85. FENOFIBRATE. [Concomitant]
     Active Substance: FENOFIBRATE
     Dosage: 160 MG, QD
     Route: 048
  86. WARFARIN [Concomitant]
     Active Substance: WARFARIN
     Dosage: 2 MG, Q FRIDAY
     Route: 048
  87. FUROSEMIDE. [Concomitant]
     Active Substance: FUROSEMIDE
     Dosage: 40 MG, QD
     Route: 048
  88. FUROSEMIDE. [Concomitant]
     Active Substance: FUROSEMIDE
     Dosage: 40 MG, PRN
     Route: 048
  89. PROCRIT [Concomitant]
     Active Substance: ERYTHROPOIETIN
     Dosage: 20000 IU/ML, PRN
  90. ATORVASTATIN [Concomitant]
     Active Substance: ATORVASTATIN
     Dosage: 40 MG, QD
     Route: 048
  91. CENTRUM SILVER [Concomitant]
     Active Substance: MINERALS\VITAMINS
     Dosage: 1 DF, QD
     Route: 048
  92. COENZYME Q-10 [Concomitant]
     Dosage: 100 MG, QD
     Route: 048
  93. DIFLUCAN [Concomitant]
     Active Substance: FLUCONAZOLE
     Dosage: 150 MG, QD
     Route: 048
  94. GABAPENTIN. [Concomitant]
     Active Substance: GABAPENTIN
     Dosage: 100 MG, QD
     Route: 048
  95. KLOR-CON [Concomitant]
     Active Substance: POTASSIUM CHLORIDE
     Dosage: 10 MEQ, QD
     Route: 048

REACTIONS (27)
  - Confusional state [Not Recovered/Not Resolved]
  - Dysstasia [Recovered/Resolved]
  - Hypersensitivity [Unknown]
  - Asthenia [Unknown]
  - Renal disorder [Unknown]
  - Arthropathy [Not Recovered/Not Resolved]
  - Dizziness [Recovering/Resolving]
  - Pruritus [Unknown]
  - Nocturia [Unknown]
  - Paresis [Unknown]
  - Paraesthesia [Unknown]
  - Cerebrovascular accident [Unknown]
  - Fatigue [Unknown]
  - Fluid retention [Unknown]
  - Oral pruritus [Not Recovered/Not Resolved]
  - Haemorrhage [Unknown]
  - Petechiae [Unknown]
  - Hypoaesthesia [Recovering/Resolving]
  - Weight decreased [Unknown]
  - Contusion [Unknown]
  - Dyspnoea [Not Recovered/Not Resolved]
  - Hypoaesthesia oral [Recovering/Resolving]
  - Vision blurred [Unknown]
  - Drug intolerance [Unknown]
  - Arthritis [Not Recovered/Not Resolved]
  - Cough [Not Recovered/Not Resolved]
  - Dyspnoea exertional [Unknown]

NARRATIVE: CASE EVENT DATE: 201508
